FAERS Safety Report 10348024 (Version 3)
Quarter: 2014Q3

REPORT INFORMATION
  Report Type: Report from Study
  Country: TW (occurrence: TW)
  Receive Date: 20140729
  Receipt Date: 20140805
  Transmission Date: 20150326
  Serious: Yes (Death, Hospitalization, Other)
  Sender: FDA-Public Use
  Company Number: TW-ABBVIE-14K-153-1262293-00

PATIENT
  Age: 54 Year
  Sex: Male
  Weight: 58.9 kg

DRUGS (6)
  1. PREDNISOLONE. [Concomitant]
     Active Substance: PREDNISOLONE
     Indication: CROHN^S DISEASE
     Route: 048
     Dates: start: 20010301
  2. HUMIRA [Suspect]
     Active Substance: ADALIMUMAB
     Indication: CROHN^S DISEASE
     Route: 058
     Dates: start: 20140701, end: 20140701
  3. PANTOLOC [Concomitant]
     Active Substance: PANTOPRAZOLE SODIUM
     Indication: LOWER GASTROINTESTINAL HAEMORRHAGE
     Route: 048
     Dates: start: 20140616
  4. FLUCONAZOLE. [Concomitant]
     Active Substance: FLUCONAZOLE
     Indication: HERPES SIMPLEX
  5. TENOFOVIR [Concomitant]
     Active Substance: TENOFOVIR
     Indication: VIRAL HEPATITIS CARRIER
     Route: 048
     Dates: start: 20130513
  6. FLUCONAZOLE. [Concomitant]
     Active Substance: FLUCONAZOLE
     Indication: CANDIDA INFECTION
     Route: 041
     Dates: start: 20140710

REACTIONS (11)
  - Respiratory failure [Fatal]
  - Lung infection [Fatal]
  - Lung neoplasm malignant [Unknown]
  - Viral infection [Unknown]
  - Haematopoietic neoplasm [Unknown]
  - Histology [Unknown]
  - Immunodeficiency [Unknown]
  - Haematemesis [Recovering/Resolving]
  - Pulmonary tuberculosis [Unknown]
  - Pyrexia [Not Recovered/Not Resolved]
  - Pulmonary mass [Unknown]

NARRATIVE: CASE EVENT DATE: 20140708
